FAERS Safety Report 4832535-1 (Version None)
Quarter: 2005Q4

REPORT INFORMATION
  Report Type: 
  Country: None (occurrence: None)
  Receive Date: 20051117
  Receipt Date: 20051109
  Transmission Date: 20060501
  Serious: Yes (Death, Other)
  Sender: FDA-Public Use
  Company Number: 163-20785-05060146

PATIENT
  Age: 73 Year
  Sex: Male

DRUGS (9)
  1. THALOMID [Suspect]
     Indication: MYELODYSPLASTIC SYNDROME
     Dosage: 100-300MG, DAILY; ORAL
     Route: 048
     Dates: start: 20031205, end: 20040515
  2. PROCRIT [Concomitant]
  3. NORVASC [Concomitant]
  4. CLARINEX [Concomitant]
  5. LEVOXYL [Concomitant]
  6. FLOMAX [Concomitant]
  7. PROSCAR [Concomitant]
  8. PEPCID [Concomitant]
  9. ACULAR [Concomitant]

REACTIONS (4)
  - DISEASE PROGRESSION [None]
  - INFECTION [None]
  - MULTIPLE MYELOMA [None]
  - MYELODYSPLASTIC SYNDROME [None]
